FAERS Safety Report 4698661-5 (Version None)
Quarter: 2005Q2

REPORT INFORMATION
  Report Type: 
  Country: None (occurrence: None)
  Receive Date: 20050622
  Receipt Date: 20050315
  Transmission Date: 20051028
  Serious: No
  Sender: FDA-Public Use
  Company Number: SU-2005-003370

PATIENT
  Age: 33 Year
  Sex: Female

DRUGS (7)
  1. BENICAR HCT [Suspect]
     Indication: HYPERTENSION
     Dosage: 20.125 MG QD PO
     Route: 048
  2. BENICAR HCT [Suspect]
     Indication: HYPERTENSION
     Dosage: MG UNK PO
     Route: 048
     Dates: start: 20050310
  3. NPH INSULIN [Concomitant]
  4. HUMALOG [Concomitant]
  5. EFFEXOR [Concomitant]
  6. ZYRTEC [Concomitant]
  7. BENADRYL ALLERGY [Concomitant]

REACTIONS (2)
  - MIOSIS [None]
  - VISION BLURRED [None]
